FAERS Safety Report 8433415 (Version 15)
Quarter: 2012Q4

REPORT INFORMATION
  Report Type: 
  Country: US (occurrence: US)
  Receive Date: 20120229
  Receipt Date: 20121227
  Transmission Date: 20130627
  Serious: Yes (Life-Threatening, Hospitalization, Congenital Anomaly, Other)
  Sender: FDA-Public Use
  Company Number: US-PFIZER INC-2012048310

PATIENT
  Sex: Female
  Weight: 4 kg

DRUGS (3)
  1. ZOLOFT [Suspect]
     Indication: DEPRESSION
     Dosage: 100 mg, UNK
     Route: 064
     Dates: start: 2005, end: 200608
  2. PRENATAL VITAMINS [Concomitant]
     Dosage: One tablet daily
     Route: 064
  3. ACETAMINOPHEN [Concomitant]
     Dosage: UNK
     Route: 064

REACTIONS (37)
  - Maternal exposure timing unspecified [Unknown]
  - Congenital anomaly [Unknown]
  - Convulsion neonatal [Recovered/Resolved]
  - Pulmonary vein stenosis [Recovered/Resolved]
  - Encephalopathy [Unknown]
  - Developmental delay [Recovering/Resolving]
  - Acute respiratory failure [Unknown]
  - Chorioretinitis [Unknown]
  - Congenital great vessel anomaly [Unknown]
  - Patent ductus arteriosus [Unknown]
  - Atrial septal defect [Unknown]
  - Tricuspid valve incompetence [Unknown]
  - Cytogenetic abnormality [Unknown]
  - Right atrial dilatation [Unknown]
  - Congenital musculoskeletal anomaly [Unknown]
  - Congenital hip deformity [Unknown]
  - Hip dysplasia [Unknown]
  - Congenital vas deferens absence [Unknown]
  - Congenital bronchiectasis [Unknown]
  - Ventricular septal defect [Unknown]
  - Atrial septal defect [Unknown]
  - Dilatation ventricular [Unknown]
  - Pulmonary haemorrhage [Unknown]
  - Pulmonary hypertension [Recovered/Resolved]
  - Otitis media chronic [Unknown]
  - Cardiomegaly [Unknown]
  - Cardiac arrest [Unknown]
  - Respiratory arrest [Unknown]
  - Anoxia [Unknown]
  - Cerebral atrophy [Unknown]
  - Brain injury [Unknown]
  - Atelectasis [Unknown]
  - Emphysema [Unknown]
  - Visual impairment [Unknown]
  - Nystagmus [Unknown]
  - Strabismus [Unknown]
  - Strabismus [Unknown]
